FAERS Safety Report 9517292 (Version 2)
Quarter: 2013Q4

REPORT INFORMATION
  Report Type: Spontaneous
  Country: US (occurrence: US)
  Receive Date: 20130911
  Receipt Date: 20131206
  Transmission Date: 20140711
  Serious: No
  Sender: FDA-Public Use
  Company Number: US-ASTRAZENECA-2013SE56149

PATIENT
  Age: 65 Year
  Sex: Male
  Weight: 112 kg

DRUGS (3)
  1. SYMBICORT [Suspect]
     Indication: CHEST DISCOMFORT
     Dosage: 160, 2 PUFFS, BID
     Route: 055
     Dates: start: 20130611, end: 20130612
  2. SYMBICORT [Suspect]
     Indication: COUGH
     Dosage: 160, 2 PUFFS, BID
     Route: 055
     Dates: start: 20130611, end: 20130612
  3. SYMBICORT [Suspect]
     Indication: OROPHARYNGEAL PAIN
     Dosage: 160, 2 PUFFS, BID
     Route: 055
     Dates: start: 20130611, end: 20130612

REACTIONS (6)
  - Dysphagia [Unknown]
  - Pharyngeal ulceration [Recovering/Resolving]
  - Throat tightness [Unknown]
  - Oropharyngeal candidiasis [Recovering/Resolving]
  - Pharyngitis [Unknown]
  - Off label use [Recovered/Resolved]
